FAERS Safety Report 6420281-2 (Version None)
Quarter: 2009Q4

REPORT INFORMATION
  Report Type: 
  Country: None (occurrence: None)
  Receive Date: 20091029
  Receipt Date: 20091021
  Transmission Date: 20100525
  Serious: Yes (Hospitalization)
  Sender: FDA-Public Use
  Company Number: IT-B.I. PHARMACEUTICALS,INC./RIDGEFIELD-2009-IT-00190IT

PATIENT
  Sex: Female

DRUGS (5)
  1. MOBIC [Suspect]
     Indication: ARTHRALGIA
     Dosage: 15 MG
     Route: 048
     Dates: start: 20090717, end: 20090722
  2. ARTROSILENE [Suspect]
     Indication: ARTHRALGIA
     Dosage: 160 MG/ 2 ML
     Route: 030
     Dates: start: 20090723, end: 20090729
  3. TRIATEC [Concomitant]
     Indication: HYPERTENSION
     Route: 048
     Dates: start: 19890701, end: 20090730
  4. GLICOREST [Concomitant]
     Indication: DIABETES MELLITUS
     Dosage: RT: 5 MG/ 500 MG
     Route: 048
     Dates: start: 19890701, end: 20090730
  5. KERITRINA [Concomitant]
     Indication: HYPERTENSIVE HEART DISEASE
     Route: 062
     Dates: start: 19890701, end: 20090730

REACTIONS (3)
  - EROSIVE DUODENITIS [None]
  - GASTRIC ULCER [None]
  - HYPERAEMIA [None]
